FAERS Safety Report 4588788-0 (Version None)
Quarter: 2005Q1

REPORT INFORMATION
  Report Type: 
  Country: None (occurrence: None)
  Receive Date: 20050222
  Receipt Date: 20050211
  Transmission Date: 20050727
  Serious: Yes (Death, Hospitalization)
  Sender: FDA-Public Use
  Company Number: US-JNJFOC-20050204201

PATIENT
  Age: 3 Year
  Sex: Male

DRUGS (2)
  1. TOPAMAX [Suspect]
  2. TOPAMAX [Suspect]

REACTIONS (3)
  - CONVULSION [None]
  - DEATH [None]
  - THERAPEUTIC RESPONSE DECREASED [None]
